FAERS Safety Report 20689676 (Version 1)
Quarter: 2022Q2

REPORT INFORMATION
  Report Type: Spontaneous
  Country: US (occurrence: None)
  Receive Date: 20220407
  Receipt Date: 20220407
  Transmission Date: 20220721
  Serious: Yes (Other)
  Sender: FDA-Public Use
  Company Number: None

PATIENT
  Age: 47 Year
  Sex: Female
  Weight: 94.05 kg

DRUGS (6)
  1. DOXYCYCLINE HYCLATE [Suspect]
     Active Substance: DOXYCYCLINE HYCLATE
     Indication: Product used for unknown indication
     Dosage: FREQUENCY : AT BEDTIME;?
     Route: 048
     Dates: start: 20220323, end: 20220407
  2. PALIPERIDONE [Suspect]
     Active Substance: PALIPERIDONE
  3. CEPHALEXIN [Suspect]
     Active Substance: CEPHALEXIN
  4. IUD NOS [Concomitant]
     Active Substance: COPPER OR LEVONORGESTREL
  5. FLEXERIL [Concomitant]
  6. AMLODIPINE [Concomitant]
     Active Substance: AMLODIPINE BESYLATE

REACTIONS (3)
  - Heart rate increased [None]
  - Heart rate decreased [None]
  - Dyspnoea [None]

NARRATIVE: CASE EVENT DATE: 20220406
